FAERS Safety Report 15600258 (Version 2)
Quarter: 2018Q4

REPORT INFORMATION
  Report Type: Spontaneous
  Country: US (occurrence: US)
  Receive Date: 20181109
  Receipt Date: 20181109
  Transmission Date: 20190205
  Serious: Yes (Other)
  Sender: FDA-Public Use
  Company Number: US-JNJFOC-20181040421

PATIENT
  Age: 38 Year
  Sex: Female
  Weight: 99.79 kg

DRUGS (1)
  1. POLYSPORIN [Suspect]
     Active Substance: BACITRACIN ZINC\POLYMYXIN B SULFATE
     Indication: SKIN LACERATION
     Dosage: JUST A LITTLE DAB 3 TIMES TOTAL OVER SEVERAL DAYS.
     Route: 061
     Dates: start: 201810, end: 201810

REACTIONS (1)
  - Hypersensitivity [Recovered/Resolved]

NARRATIVE: CASE EVENT DATE: 201810
